FAERS Safety Report 11630628 (Version 1)
Quarter: 2015Q4

REPORT INFORMATION
  Report Type: Spontaneous
  Country: US (occurrence: US)
  Receive Date: 20151014
  Receipt Date: 20151014
  Transmission Date: 20160304
  Serious: No
  Sender: FDA-Public Use
  Company Number: US-INDIVIOR-RB-081136-2015

PATIENT
  Age: 25 Year
  Sex: Female

DRUGS (1)
  1. SUBOXONE [Suspect]
     Active Substance: BUPRENORPHINE HYDROCHLORIDE\NALOXONE HYDROCHLORIDE
     Indication: DRUG DEPENDENCE
     Dosage: SMALL PIECE OF 8 MG FILM FOR 2 DAYS
     Route: 060
     Dates: start: 20150708, end: 20150709

REACTIONS (6)
  - Toothache [Not Recovered/Not Resolved]
  - Fatigue [Recovered/Resolved]
  - Tooth disorder [Recovered/Resolved]
  - Substance abuse [Recovered/Resolved]
  - Product preparation error [Recovered/Resolved]
  - Oral pain [Not Recovered/Not Resolved]

NARRATIVE: CASE EVENT DATE: 20150708
